FAERS Safety Report 10229886 (Version 2)
Quarter: 2015Q1

REPORT INFORMATION
  Report Type: Spontaneous
  Country: US (occurrence: None)
  Receive Date: 20140609
  Receipt Date: 20150309
  Transmission Date: 20150720
  Serious: Yes (Death, Hospitalization, Other)
  Sender: FDA-Public Use
  Company Number: UTC-044081

PATIENT
  Age: 66 Year
  Sex: Female
  Weight: 40.8 kg

DRUGS (3)
  1. REMODULIN [Suspect]
     Active Substance: TREPROSTINIL
     Indication: PULMONARY ARTERIAL HYPERTENSION
     Dosage: 0.031 UG/KG, CONTINUING, SUBCUTANEOUS
     Route: 041
     Dates: start: 20110801
  2. REMODULIN [Suspect]
     Active Substance: TREPROSTINIL
     Indication: COR PULMONALE CHRONIC
     Dosage: 0.031 UG/KG, CONTINUING, SUBCUTANEOUS
     Route: 041
     Dates: start: 20110801
  3. ADCIRCA [Concomitant]
     Active Substance: TADALAFIL

REACTIONS (6)
  - Pulmonary arterial hypertension [None]
  - Infusion site pain [None]
  - Device alarm issue [None]
  - Interstitial lung disease [None]
  - Right ventricular failure [None]
  - Disease progression [None]

NARRATIVE: CASE EVENT DATE: 201401
